FAERS Safety Report 7396965-9 (Version None)
Quarter: 2011Q2

REPORT INFORMATION
  Report Type: 
  Country: None (occurrence: None)
  Receive Date: 20110406
  Receipt Date: 20110325
  Transmission Date: 20111010
  Serious: Yes (Life-Threatening)
  Sender: FDA-Public Use
  Company Number: US-BAYER-201019172NA

PATIENT
  Sex: Female

DRUGS (3)
  1. YAZ [Suspect]
     Indication: CONTRACEPTION
     Route: 048
  2. OCELLA [Suspect]
  3. YASMIN [Suspect]

REACTIONS (9)
  - PAIN [None]
  - EMOTIONAL DISTRESS [None]
  - ORGAN FAILURE [None]
  - INJURY [None]
  - FATIGUE [None]
  - ASTHENIA [None]
  - GALLBLADDER DISORDER [None]
  - ANXIETY [None]
  - ANHEDONIA [None]
